FAERS Safety Report 18226317 (Version 1)
Quarter: 2020Q3

REPORT INFORMATION
  Report Type: Report from Study
  Country: IT (occurrence: IT)
  Receive Date: 20200903
  Receipt Date: 20200903
  Transmission Date: 20201103
  Serious: Yes (Other)
  Sender: FDA-Public Use
  Company Number: IT-TEVA-2020-IT-1822373

PATIENT
  Age: 56 Year
  Sex: Female
  Weight: 54 kg

DRUGS (11)
  1. METHOTREXATE. [Suspect]
     Active Substance: METHOTREXATE
     Indication: NON-HODGKIN^S LYMPHOMA
     Dosage: UNIT DOSE : 12.5 MILLIGRAM
     Route: 042
     Dates: start: 20200508
  2. ETOPOSIDE. [Suspect]
     Active Substance: ETOPOSIDE
     Indication: NON-HODGKIN^S LYMPHOMA
     Dosage: UNIT DOSE : 80 MILLIGRAM
     Route: 042
     Dates: start: 20200504
  3. GRANISETRON HYDROCHLORIDE. [Concomitant]
     Active Substance: GRANISETRON HYDROCHLORIDE
     Indication: VOMITING
     Dosage: UNIT DOSE : 3 MILLIGRAM
     Route: 042
     Dates: start: 20200406
  4. HYDROCORTISONE SODIUM SUCCINATE [Concomitant]
     Active Substance: HYDROCORTISONE SODIUM SUCCINATE
     Indication: INFLAMMATION
     Dosage: UNIT DOSE : 100 MILLIGRAM
     Route: 042
     Dates: start: 20200415
  5. PARACETAMOL [Concomitant]
     Active Substance: ACETAMINOPHEN
     Indication: ANTIPYRESIS
     Dosage: UNIT DOSE : 1000 MILLIGRAM
     Route: 042
     Dates: start: 20200415
  6. CYCLOPHOSPHAMIDE. [Suspect]
     Active Substance: CYCLOPHOSPHAMIDE
     Indication: NON-HODGKIN^S LYMPHOMA
     Dosage: UNIT DOSE : 1200 MILLIGRAM
     Route: 042
     Dates: start: 20200406
  7. VINCRISTINE SULFATE. [Suspect]
     Active Substance: VINCRISTINE SULFATE
     Indication: NON-HODGKIN^S LYMPHOMA
     Dosage: UNIT DOSE : 1 MILLIGRAM
     Route: 042
     Dates: start: 20200406
  8. RITUXIMAB. [Suspect]
     Active Substance: RITUXIMAB
     Indication: NON-HODGKIN^S LYMPHOMA
     Dosage: UNIT DOSE : 600 MILLIGRAM
     Route: 042
     Dates: start: 20200415
  9. DOXORUBICIN HYDROCHLORIDE. [Suspect]
     Active Substance: DOXORUBICIN HYDROCHLORIDE
     Indication: NON-HODGKIN^S LYMPHOMA
     Dosage: UNIT DOSE : 80 MILLIGRAM
     Route: 042
     Dates: start: 20200406
  10. CHLORPHENAMINE MALEATE [Concomitant]
     Active Substance: CHLORPHENIRAMINE MALEATE
     Indication: VOMITING
     Dosage: UNIT DOSE : 10 MILLIGRAM
     Route: 042
     Dates: start: 20200415
  11. METHYLPREDNISOLONE SODIUM HEMISUCCINATE [Concomitant]
     Active Substance: METHYLPREDNISOLONE HEMISUCCINATE
     Indication: INFLAMMATION
     Dosage: UNIT DOSE : 80 MILLIGRAM
     Route: 042
     Dates: start: 20200406

REACTIONS (4)
  - Neutropenia [Recovering/Resolving]
  - Thrombocytopenia [Recovering/Resolving]
  - Asthenia [Recovering/Resolving]
  - Lymphopenia [Recovering/Resolving]

NARRATIVE: CASE EVENT DATE: 20200717
